FAERS Safety Report 5525989-9 (Version None)
Quarter: 2007Q4

REPORT INFORMATION
  Report Type: 
  Country: None (occurrence: None)
  Receive Date: 20071126
  Receipt Date: 20071108
  Transmission Date: 20080405
  Serious: No
  Sender: FDA-Public Use
  Company Number: US-BOEHRINGER INGELHEIM PHARMACEUTICALS, INC.-2007-BP-24176BP

PATIENT
  Sex: Female

DRUGS (4)
  1. SPIRIVA [Suspect]
     Indication: LUNG DISORDER
     Route: 055
     Dates: start: 20061101
  2. CARTIA XT [Concomitant]
     Indication: HYPERTENSION
  3. ALPRAZOLAM [Concomitant]
     Indication: ANXIETY
  4. ATROVENT [Concomitant]
     Indication: LUNG DISORDER

REACTIONS (4)
  - FEELING ABNORMAL [None]
  - NASAL CONGESTION [None]
  - RASH [None]
  - THIRST [None]
